FAERS Safety Report 5832078-2 (Version None)
Quarter: 2008Q3

REPORT INFORMATION
  Report Type: 
  Country: None (occurrence: None)
  Receive Date: 20080804
  Receipt Date: 20080724
  Transmission Date: 20090109
  Serious: Yes (Hospitalization)
  Sender: FDA-Public Use
  Company Number: SE-BAXTER-2008BH006730

PATIENT
  Age: 35 Year
  Sex: Female

DRUGS (12)
  1. GAMMAGARD LIQUID [Suspect]
     Indication: ANTIPHOSPHOLIPID SYNDROME
     Route: 065
     Dates: start: 20080618, end: 20080621
  2. GAMMAGARD LIQUID [Suspect]
     Indication: OFF LABEL USE
     Route: 065
     Dates: start: 20080618, end: 20080621
  3. GAMMAGARD LIQUID [Suspect]
     Route: 065
     Dates: start: 20080618, end: 20080619
  4. GAMMAGARD LIQUID [Suspect]
     Route: 065
     Dates: start: 20080618, end: 20080619
  5. GAMMAGARD LIQUID [Suspect]
     Route: 065
     Dates: start: 20080620, end: 20080620
  6. GAMMAGARD LIQUID [Suspect]
     Route: 065
     Dates: start: 20080620, end: 20080620
  7. GAMMAGARD LIQUID [Suspect]
     Route: 065
     Dates: start: 20080621, end: 20080621
  8. GAMMAGARD LIQUID [Suspect]
     Route: 065
     Dates: start: 20080621, end: 20080621
  9. ESCITALOPRAM [Concomitant]
     Route: 048
  10. FRAGMIN [Concomitant]
     Dates: start: 20080616
  11. PLANQUENIL [Concomitant]
     Route: 048
  12. ASPIRIN [Concomitant]
     Route: 048
     Dates: start: 20080616

REACTIONS (9)
  - C-REACTIVE PROTEIN INCREASED [None]
  - CHILLS [None]
  - DRUG EXPOSURE DURING PREGNANCY [None]
  - HEADACHE [None]
  - LEUKOPENIA [None]
  - NAUSEA [None]
  - PYREXIA [None]
  - RED BLOOD CELL ABNORMALITY [None]
  - TRANSAMINASES INCREASED [None]
